FAERS Safety Report 4563842-8 (Version None)
Quarter: 2005Q1

REPORT INFORMATION
  Report Type: 
  Country: None (occurrence: None)
  Receive Date: 20050128
  Receipt Date: 20040929
  Transmission Date: 20050727
  Serious: No
  Sender: FDA-Public Use
  Company Number: US-GLAXOSMITHKLINE-A0527946A

PATIENT
  Age: 31 Year
  Sex: Female
  Weight: 46.4 kg

DRUGS (9)
  1. LEXIVA [Suspect]
     Indication: HIV INFECTION
     Dosage: 1400MG PER DAY
     Route: 048
     Dates: start: 20040926
  2. RITONAVIR [Concomitant]
     Dosage: 200MG PER DAY
  3. TRUVADA [Concomitant]
  4. PROPRANOLOL HYDROCHLORIDE [Concomitant]
     Indication: GASTRIC VARICES
     Dosage: 20MG TWICE PER DAY
     Route: 048
     Dates: start: 20040927
  5. REGLAN [Concomitant]
     Dosage: 10MG SEE DOSAGE TEXT
     Route: 048
     Dates: start: 20040927
  6. PRIMROSE [Concomitant]
  7. LIVER AID [Concomitant]
  8. AMINO ACID INJ [Concomitant]
  9. CALCIUM GLUCONATE [Concomitant]

REACTIONS (2)
  - HYPOAESTHESIA [None]
  - PARAESTHESIA [None]
